FAERS Safety Report 9234165 (Version 4)
Quarter: 2013Q2

REPORT INFORMATION
  Report Type: Spontaneous
  Country: JP (occurrence: JP)
  Receive Date: 20130416
  Receipt Date: 20130612
  Transmission Date: 20140414
  Serious: Yes (Other)
  Sender: FDA-Public Use
  Company Number: JP-PFIZER INC-2013117594

PATIENT
  Age: 69 Year
  Sex: Female

DRUGS (3)
  1. LIPITOR [Suspect]
     Indication: HYPERCHOLESTEROLAEMIA
     Dosage: 10 MG, DAILY
     Route: 048
     Dates: start: 201104
  2. MERISLON [Concomitant]
     Indication: DIZZINESS
     Dosage: AS NEEDED
     Route: 048
     Dates: start: 20110316
  3. DEPAS [Concomitant]
     Indication: DIZZINESS
     Dosage: AS NEEDED
     Route: 048
     Dates: start: 20110323

REACTIONS (4)
  - Convulsion [Recovered/Resolved]
  - Hypertension [Unknown]
  - Dyskinesia [Recovered/Resolved]
  - Dizziness [Recovered/Resolved]
